FAERS Safety Report 8320152 (Version 5)
Quarter: 2012Q4

REPORT INFORMATION
  Report Type: 
  Country: US (occurrence: US)
  Receive Date: 20120103
  Receipt Date: 20121127
  Transmission Date: 20130627
  Serious: Yes (Other)
  Sender: FDA-Public Use
  Company Number: US-ASTRAZENECA-2011SE73230

PATIENT
  Age: 70 Year
  Sex: Female

DRUGS (4)
  1. ATACAND [Suspect]
     Route: 048
  2. NEXIUM [Suspect]
     Route: 048
  3. ACCOLATE [Suspect]
     Route: 048
  4. AMLODIPINE [Suspect]
     Route: 065

REACTIONS (9)
  - Cardiac disorder [Unknown]
  - Lethargy [Unknown]
  - Hypertension [Unknown]
  - Blood pressure abnormal [Unknown]
  - Stress [Unknown]
  - Influenza [Unknown]
  - Depression [Unknown]
  - Intentional drug misuse [Unknown]
  - Drug dose omission [Unknown]
